FAERS Safety Report 8608389 (Version 2)
Quarter: 2013Q2

REPORT INFORMATION
  Report Type: Spontaneous
  Country: US (occurrence: US)
  Receive Date: 20120611
  Receipt Date: 20130609
  Transmission Date: 20140414
  Serious: Yes (Death, Hospitalization, Disabling, Other)
  Sender: FDA-Public Use
  Company Number: US-ASTRAZENECA-2012SE35302

PATIENT
  Age: 59 Year
  Sex: Female
  Weight: 122.5 kg

DRUGS (24)
  1. NEXIUM [Suspect]
     Indication: GASTROOESOPHAGEAL REFLUX DISEASE
     Dosage: ONCE EVERY DAY
     Route: 048
  2. NEXIUM [Suspect]
     Indication: GASTROOESOPHAGEAL REFLUX DISEASE
     Route: 048
     Dates: start: 20111224
  3. PROTONIX [Concomitant]
  4. ASPIRIN/ALKA-SELTZLER [Concomitant]
     Indication: DYSPEPSIA
  5. LIPITOR [Concomitant]
  6. AVANDIA [Concomitant]
  7. TYLENOL [Concomitant]
  8. DIGOXIN [Concomitant]
     Dates: start: 20111224
  9. METOPROLOL [Concomitant]
     Indication: CARDIAC DISORDER
  10. METOPROLOL [Concomitant]
     Indication: CARDIAC DISORDER
     Dates: start: 20111224
  11. MORPHINE [Concomitant]
     Indication: PAIN
  12. MORPHINE [Concomitant]
     Indication: PAIN
     Dates: start: 20120331
  13. AMITRIPTYLINE HCL [Concomitant]
     Dates: start: 20120124
  14. CALCITRIOL [Concomitant]
     Dates: start: 20120128
  15. CLONAZEPAM [Concomitant]
     Dates: start: 20111205
  16. GABAPENTIN [Concomitant]
     Dates: start: 20120311
  17. CYCLOBENZAPRINE [Concomitant]
     Dates: start: 20120509
  18. HYDROCORTISONE [Concomitant]
     Dates: start: 20111217
  19. HYDROXYZINE HCL [Concomitant]
     Dates: start: 20120229
  20. LYRICA [Concomitant]
     Dates: start: 20120404
  21. MIDODRINE HCL [Concomitant]
     Dates: start: 20111206
  22. OXYBUTYNIN [Concomitant]
     Dates: start: 20111224
  23. SENSIPAR [Concomitant]
     Dates: start: 20111221
  24. SIMVASTATIN [Concomitant]
     Dates: start: 20111220

REACTIONS (14)
  - Renal failure [Fatal]
  - Infection [Unknown]
  - Musculoskeletal disorder [Unknown]
  - Angina pectoris [Unknown]
  - Hand fracture [Unknown]
  - Fracture [Unknown]
  - Bone pain [Unknown]
  - Cataract [Unknown]
  - Osteogenesis imperfecta [Unknown]
  - Lung disorder [Unknown]
  - Osteoporosis [Unknown]
  - Diabetes mellitus [Unknown]
  - Glaucoma [Unknown]
  - Multiple fractures [Unknown]
